FAERS Safety Report 19946338 (Version 1)
Quarter: 2021Q4

REPORT INFORMATION
  Report Type: Spontaneous
  Country: US (occurrence: US)
  Receive Date: 20211013
  Receipt Date: 20211013
  Transmission Date: 20220303
  Serious: Yes (Hospitalization, Other)
  Sender: FDA-Public Use
  Company Number: US-ABBVIE-21K-163-4111399-00

PATIENT

DRUGS (3)
  1. VICODIN [Suspect]
     Active Substance: ACETAMINOPHEN\HYDROCODONE BITARTRATE
     Indication: Product used for unknown indication
     Route: 048
  2. OXYCODONE [Suspect]
     Active Substance: OXYCODONE
     Indication: Product used for unknown indication
     Route: 065
  3. NORCO [Suspect]
     Active Substance: ACETAMINOPHEN\HYDROCODONE BITARTRATE
     Indication: Product used for unknown indication
     Route: 065

REACTIONS (8)
  - Drug dependence [Unknown]
  - Autoimmune disorder [Unknown]
  - Blood pressure decreased [Unknown]
  - Nephrotic syndrome [Unknown]
  - Sepsis [Unknown]
  - Dental caries [Unknown]
  - Chondropathy [Unknown]
  - Neuropathy peripheral [Unknown]
